FAERS Safety Report 18222406 (Version 2)
Quarter: 2021Q3

REPORT INFORMATION
  Report Type: Spontaneous
  Country: CA (occurrence: CA)
  Receive Date: 20200902
  Receipt Date: 20210803
  Transmission Date: 20211014
  Serious: Yes (Hospitalization)
  Sender: FDA-Public Use
  Company Number: CA-ASTRAZENECA-2020SF09685

PATIENT
  Age: 82 Year
  Sex: Female
  Weight: 34 kg

DRUGS (19)
  1. CLOZARIL [Suspect]
     Active Substance: CLOZAPINE
     Indication: COGNITIVE DISORDER
     Dosage: EVERY BEDTIME
     Route: 048
     Dates: start: 20200122, end: 20200126
  2. LEVOTHYROXINE. [Concomitant]
     Active Substance: LEVOTHYROXINE
     Route: 048
  3. CLOZARIL [Suspect]
     Active Substance: CLOZAPINE
     Indication: PSYCHOTIC DISORDER
     Dosage: EVERY BEDTIME
     Route: 048
     Dates: start: 20200111, end: 20200116
  4. CLOZARIL [Suspect]
     Active Substance: CLOZAPINE
     Indication: PSYCHOTIC DISORDER
     Dosage: EVERY BEDTIME
     Route: 048
     Dates: start: 20200122, end: 20200126
  5. CLOZARIL [Suspect]
     Active Substance: CLOZAPINE
     Indication: COGNITIVE DISORDER
     Route: 048
     Dates: start: 20200117, end: 20200131
  6. ASA [Concomitant]
     Active Substance: ASPIRIN
     Route: 048
  7. CENTRUM FORTE [Concomitant]
  8. VITAMIN D [Concomitant]
     Active Substance: VITAMIN D NOS
     Dosage: 1000 1.U. PO DAILY CC
     Route: 048
  9. CLOZARIL [Suspect]
     Active Substance: CLOZAPINE
     Indication: PSYCHOTIC DISORDER
     Route: 048
     Dates: start: 20200117, end: 20200131
  10. PERINDOPRIL [Concomitant]
     Active Substance: PERINDOPRIL
     Route: 048
  11. LAX?A?DAY [Concomitant]
     Active Substance: POLYETHYLENE GLYCOL 3350
     Route: 048
  12. QUETIAPINE. [Concomitant]
     Active Substance: QUETIAPINE
     Route: 048
  13. PERINDOPRIL [Concomitant]
     Active Substance: PERINDOPRIL
     Route: 048
  14. AMLODIPINE [Concomitant]
     Active Substance: AMLODIPINE BESYLATE
     Route: 048
  15. QUETIAPINE. [Suspect]
     Active Substance: QUETIAPINE
     Indication: PSYCHOTIC DISORDER
     Dosage: BEDTIME
     Route: 048
     Dates: start: 20200124
  16. QUETIAPINE. [Suspect]
     Active Substance: QUETIAPINE
     Indication: COGNITIVE DISORDER
     Dosage: BEDTIME
     Route: 048
     Dates: start: 20200124
  17. CLOZARIL [Suspect]
     Active Substance: CLOZAPINE
     Indication: COGNITIVE DISORDER
     Dosage: EVERY BEDTIME
     Route: 048
     Dates: start: 20200111, end: 20200116
  18. CALCIUM CARBONATE CO [Concomitant]
     Dosage: 12 NOON
     Route: 048
  19. MYRBETRIQ [Concomitant]
     Active Substance: MIRABEGRON
     Route: 048

REACTIONS (5)
  - Haemoglobin decreased [Not Recovered/Not Resolved]
  - Platelet count decreased [Not Recovered/Not Resolved]
  - Neutrophil count decreased [Not Recovered/Not Resolved]
  - White blood cell count decreased [Not Recovered/Not Resolved]
  - Pancytopenia [Not Recovered/Not Resolved]

NARRATIVE: CASE EVENT DATE: 20200114
